FAERS Safety Report 17265155 (Version 5)
Quarter: 2020Q2

REPORT INFORMATION
  Report Type: Report from Study
  Country: US (occurrence: US)
  Receive Date: 20200113
  Receipt Date: 20200624
  Transmission Date: 20200713
  Serious: No
  Sender: FDA-Public Use
  Company Number: NVSC2020US006432

PATIENT
  Sex: Male

DRUGS (1)
  1. COSENTYX [Suspect]
     Active Substance: SECUKINUMAB
     Indication: PSORIASIS
     Dosage: 300 MG, QMO
     Route: 058

REACTIONS (6)
  - Localised infection [Not Recovered/Not Resolved]
  - Skin infection [Not Recovered/Not Resolved]
  - Malaise [Recovering/Resolving]
  - Injection site bruising [Recovering/Resolving]
  - Nausea [Recovered/Resolved]
  - Injection site haemorrhage [Recovering/Resolving]
